FAERS Safety Report 6590019-7 (Version None)
Quarter: 2010Q1

REPORT INFORMATION
  Report Type: 
  Country: None (occurrence: None)
  Receive Date: 20100219
  Receipt Date: 20100209
  Transmission Date: 20100710
  Serious: Yes (Hospitalization, Other)
  Sender: FDA-Public Use
  Company Number: PHHY2009GB55504

PATIENT
  Sex: Female

DRUGS (7)
  1. CLOZARIL [Suspect]
     Indication: SCHIZOPHRENIA
     Dosage: 400 MG, UNK
     Route: 048
     Dates: start: 20070330
  2. CLOZARIL [Suspect]
     Dosage: 25 MG, BID
     Dates: start: 20091219
  3. CLOZARIL [Suspect]
     Dosage: 100 MG OM AND 400 MG ON
     Dates: start: 20100113
  4. VALPROIC ACID [Concomitant]
     Indication: AGITATION
     Dosage: 2 G, UNK
     Route: 048
  5. PARACETAMOL [Concomitant]
     Indication: PAIN
     Dosage: 4 G, UNK
     Route: 048
  6. METRONIDAZOLE [Concomitant]
     Indication: INFECTION
     Dosage: 1.2 G, UNK
     Route: 048
     Dates: end: 20091225
  7. AMOXICILLIN [Concomitant]
     Indication: INFECTION
     Dosage: 4 G, UNK
     Route: 048
     Dates: end: 20091225

REACTIONS (14)
  - ASTHENIA [None]
  - C-REACTIVE PROTEIN INCREASED [None]
  - DRUG DOSE OMISSION [None]
  - EMPYEMA [None]
  - MALAISE [None]
  - MOBILITY DECREASED [None]
  - OBSTRUCTIVE AIRWAYS DISORDER [None]
  - PLATELET COUNT INCREASED [None]
  - PLEURAL EFFUSION [None]
  - PNEUMONIA [None]
  - PYREXIA [None]
  - RESPIRATORY GAS EXCHANGE DISORDER [None]
  - URINARY TRACT INFECTION [None]
  - WHITE BLOOD CELL COUNT INCREASED [None]
